FAERS Safety Report 5842838-X (Version None)
Quarter: 2008Q3

REPORT INFORMATION
  Report Type: 
  Country: None (occurrence: None)
  Receive Date: 20080813
  Receipt Date: 20080805
  Transmission Date: 20090109
  Serious: Yes (Other)
  Sender: FDA-Public Use
  Company Number: GB-RANBAXY-2008RR-17007

PATIENT

DRUGS (1)
  1. FLUOXETINE [Suspect]
     Route: 048

REACTIONS (3)
  - CHAPPED LIPS [None]
  - LIP SWELLING [None]
  - WOUND SECRETION [None]
